FAERS Safety Report 9057011 (Version 1)
Quarter: 2013Q1

REPORT INFORMATION
  Report Type: Spontaneous
  Country: PR (occurrence: PR)
  Receive Date: 20130131
  Receipt Date: 20130131
  Transmission Date: 20140127
  Serious: No
  Sender: FDA-Public Use
  Company Number: PR-ABBOTT-12P-131-0938266-00

PATIENT
  Sex: Male
  Weight: 69.01 kg

DRUGS (10)
  1. HUMIRA 40 MG/0.8 ML PEN [Suspect]
     Indication: PSORIATIC ARTHROPATHY
     Route: 058
     Dates: start: 201202, end: 201205
  2. HUMIRA 40 MG/0.8 ML PEN [Suspect]
     Route: 058
     Dates: start: 201206, end: 201210
  3. RELAFEN [Concomitant]
     Indication: PAIN
     Dosage: 1 TABLET DAILY, AS REQUIRED
     Route: 048
  4. COZAAR [Concomitant]
     Indication: HYPERTENSION
     Dosage: 1 TABLET DAILY
     Route: 048
  5. NORVASC [Concomitant]
     Indication: HYPERTENSION
     Dosage: 1 TABLET DAILY
     Route: 048
  6. ASPIRIN [Concomitant]
     Indication: PRODUCT USED FOR UNKNOWN INDICATION
     Dosage: 1 TABLET DAILY
     Route: 048
  7. ZANTAC [Concomitant]
     Indication: GASTRITIS
     Dosage: 1 TABLET DAILY
     Route: 048
  8. FLORICET [Concomitant]
     Indication: MIGRAINE
     Dosage: 1 TABLET DAILY, AS REQUIRED
     Route: 048
  9. MEDICATED SHAMPOO [Concomitant]
     Indication: PSORIASIS
     Dosage: THREE TIMES / WEEK
     Route: 061
  10. GASTRINEX [Concomitant]
     Indication: GASTRITIS
     Route: 048
     Dates: start: 201204

REACTIONS (10)
  - Drug dose omission [Unknown]
  - Gastrointestinal inflammation [Unknown]
  - Nasopharyngitis [Recovered/Resolved]
  - Nasopharyngitis [Recovered/Resolved]
  - Pyrexia [Recovered/Resolved]
  - Oropharyngeal pain [Recovered/Resolved]
  - Abdominal pain upper [Recovered/Resolved]
  - Arthralgia [Not Recovered/Not Resolved]
  - Arthralgia [Recovered/Resolved]
  - Hepatic enzyme increased [Unknown]
